FAERS Safety Report 8174251 (Version 2)
Quarter: 2013Q2

REPORT INFORMATION
  Report Type: Spontaneous
  Country: FR (occurrence: FR)
  Receive Date: 20111010
  Receipt Date: 20130618
  Transmission Date: 20140414
  Serious: Yes (Hospitalization)
  Sender: FDA-Public Use
  Company Number: FR-BRISTOL-MYERS SQUIBB COMPANY-16138893

PATIENT
  Age: 39 Year
  Sex: Male

DRUGS (2)
  1. REYATAZ CAPS [Suspect]
     Indication: HIV INFECTION
     Dosage: BETWEEN FEB06-JUN06.
     Route: 048
     Dates: start: 200602, end: 20110926
  2. KIVEXA [Concomitant]

REACTIONS (1)
  - Renal colic [Recovered/Resolved]
